FAERS Safety Report 14794819 (Version 1)
Quarter: 2018Q2

REPORT INFORMATION
  Report Type: Spontaneous
  Country: US (occurrence: US)
  Receive Date: 20180423
  Receipt Date: 20180423
  Transmission Date: 20180711
  Serious: Yes (Other)
  Sender: FDA-Public Use
  Company Number: US-MYLANLABS-2018M1025080

PATIENT
  Age: 17 Year
  Sex: Male

DRUGS (2)
  1. TESTOSTERONE CYPIONATE INJECTION, USP [Suspect]
     Active Substance: TESTOSTERONE CYPIONATE
     Dosage: 100 MG, BIWEEKLY
     Route: 030
  2. TESTOSTERONE CYPIONATE INJECTION, USP [Suspect]
     Active Substance: TESTOSTERONE CYPIONATE
     Indication: GENDER DYSPHORIA
     Dosage: LATER INCREASED TO 100MG EVERY 2 WEEKS OVER 15 MONTHS
     Route: 030

REACTIONS (1)
  - Metabolic syndrome [Recovering/Resolving]
